FAERS Safety Report 6580167-X (Version None)
Quarter: 2010Q1

REPORT INFORMATION
  Report Type: 
  Country: None (occurrence: None)
  Receive Date: 20100203
  Receipt Date: 20100126
  Transmission Date: 20100710
  Serious: Yes (Death)
  Sender: FDA-Public Use
  Company Number: 2010SP000352

PATIENT
  Age: 62 Year
  Sex: Female

DRUGS (6)
  1. REFLEX (MIRTAZAPINE / 01293201/) [Suspect]
     Indication: DEPRESSED MOOD
     Dosage: 15 MG; QD; PO
     Route: 048
     Dates: start: 20091215, end: 20091217
  2. REFLEX (MIRTAZAPINE / 01293201/) [Suspect]
     Indication: INSOMNIA
     Dosage: 15 MG; QD; PO
     Route: 048
     Dates: start: 20091215, end: 20091217
  3. ZOLPIDEM TARTRATE [Concomitant]
  4. ETIZOLAM [Concomitant]
  5. CLOTIAZEPAM [Concomitant]
  6. SULPIRIDE [Concomitant]

REACTIONS (1)
  - COMPLETED SUICIDE [None]
